FAERS Safety Report 6477409-8 (Version None)
Quarter: 2009Q4

REPORT INFORMATION
  Report Type: 
  Country: None (occurrence: None)
  Receive Date: 20091207
  Receipt Date: 20091124
  Transmission Date: 20100525
  Serious: Yes (Hospitalization)
  Sender: FDA-Public Use
  Company Number: JP-SANOFI-AVENTIS-200912476JP

PATIENT
  Age: 61 Year
  Sex: Female
  Weight: 49.65 kg

DRUGS (2)
  1. RILUZOLE [Suspect]
     Indication: AMYOTROPHIC LATERAL SCLEROSIS
     Route: 048
     Dates: start: 20090723, end: 20090820
  2. METHYCOBAL [Concomitant]
     Indication: AMYOTROPHIC LATERAL SCLEROSIS
     Route: 048
     Dates: start: 20090820, end: 20090827

REACTIONS (1)
  - PEMPHIGOID [None]
